FAERS Safety Report 10575265 (Version 1)
Quarter: 2014Q4

REPORT INFORMATION
  Report Type: Spontaneous
  Country: US (occurrence: None)
  Receive Date: 20141107
  Receipt Date: 20141107
  Transmission Date: 20150529
  Serious: Yes (Other)
  Sender: FDA-Public Use
  Company Number: AEGR000845

PATIENT
  Age: 23 Year
  Sex: Male
  Weight: 101.1 kg

DRUGS (1)
  1. JUXTAPID [Suspect]
     Active Substance: LOMITAPIDE MESYLATE
     Indication: TYPE IIA HYPERLIPIDAEMIA
     Route: 048
     Dates: start: 20141004

REACTIONS (5)
  - Haematochezia [None]
  - Diarrhoea [None]
  - Constipation [None]
  - Weight decreased [None]
  - Painful defaecation [None]

NARRATIVE: CASE EVENT DATE: 201410
